FAERS Safety Report 5125953-8 (Version None)
Quarter: 2006Q4

REPORT INFORMATION
  Report Type: 
  Country: None (occurrence: None)
  Receive Date: 20061012
  Receipt Date: 20060831
  Transmission Date: 20070319
  Serious: Yes (Disabling)
  Sender: FDA-Public Use
  Company Number: 2006UW17283

PATIENT
  Age: 433 Month
  Sex: Female

DRUGS (1)
  1. ARIMIDEX [Suspect]
     Indication: BREAST CANCER
     Route: 048
     Dates: start: 20051201, end: 20060101

REACTIONS (2)
  - ARTHRALGIA [None]
  - RHEUMATOID ARTHRITIS [None]
